FAERS Safety Report 9206553 (Version 1)
Quarter: 2013Q1

REPORT INFORMATION
  Report Type: Spontaneous
  Country: US (occurrence: None)
  Receive Date: 20120731
  Receipt Date: 20120731
  Transmission Date: 20140127
  Serious: Yes (Other)
  Sender: FDA-Public Use
  Company Number: US201204005171

PATIENT
  Age: 65 Year
  Sex: Female
  Weight: 81.6 kg

DRUGS (5)
  1. BYETTA (EXENATIDE) PEN, DISPOSABLE [Suspect]
     Indication: DIABETES MELLITUS
     Route: 058
  2. EXENATIDE 10MCG PEN , DISPOSABLE DEVICE (EXENATIDE PEN (10MCG)) PEN, DISPOSABLE [Concomitant]
  3. LANTUS (INSULIN GLARGINE) [Concomitant]
  4. APIDRA (INSULIN GLULISINE) [Concomitant]
  5. HUMALOG (INSULIN LISPRO) [Concomitant]

REACTIONS (5)
  - Blood glucose decreased [None]
  - Vision blurred [None]
  - Communication disorder [None]
  - Underdose [None]
  - Weight decreased [None]
